FAERS Safety Report 9506475 (Version 1)
Quarter: 2013Q3

REPORT INFORMATION
  Report Type: Spontaneous
  Country: US (occurrence: US)
  Receive Date: 20130906
  Receipt Date: 20130906
  Transmission Date: 20140515
  Serious: Yes (Other)
  Sender: FDA-Public Use
  Company Number: PHEH2013US018594

PATIENT
  Sex: Female

DRUGS (1)
  1. ZOMETA [Suspect]
     Indication: PLASMA CELL MYELOMA
     Dates: start: 20100804, end: 20101123

REACTIONS (9)
  - Osteonecrosis of jaw [Unknown]
  - Exposed bone in jaw [Recovering/Resolving]
  - Bone disorder [Not Recovered/Not Resolved]
  - Pain [Unknown]
  - Infection [Unknown]
  - Deformity [Unknown]
  - Injury [Unknown]
  - Anxiety [Unknown]
  - Physical disability [Unknown]
